FAERS Safety Report 5447909-8 (Version None)
Quarter: 2007Q3

REPORT INFORMATION
  Report Type: 
  Country: None (occurrence: None)
  Receive Date: 20070910
  Receipt Date: 20070829
  Transmission Date: 20080115
  Serious: Yes (Hospitalization)
  Sender: FDA-Public Use
  Company Number: GB-PFIZER INC-2007070239

PATIENT
  Sex: Male

DRUGS (10)
  1. SUTENT [Suspect]
     Indication: RENAL CELL CARCINOMA STAGE UNSPECIFIED
     Route: 048
  2. PARACETAMOL [Concomitant]
     Route: 048
  3. SALBUTAMOL [Concomitant]
     Route: 055
  4. BECOTIDE [Concomitant]
     Route: 055
  5. COD-LIVER OIL [Concomitant]
     Route: 048
  6. CORSODYL [Concomitant]
     Route: 061
  7. HYOSCINE [Concomitant]
     Route: 048
  8. CODEINE PHOSPHATE AND ACETAMINOPHEN [Concomitant]
     Route: 048
  9. BUSCOPAN [Concomitant]
     Route: 048
  10. CO-DANTHRAMER [Concomitant]
     Route: 048

REACTIONS (1)
  - PHIMOSIS [None]
